FAERS Safety Report 8114806-9 (Version None)
Quarter: 2012Q1

REPORT INFORMATION
  Report Type: 
  Country: None (occurrence: None)
  Receive Date: 20120202
  Receipt Date: 20120202
  Transmission Date: 20120608
  Serious: Yes (Other)
  Sender: FDA-Public Use
  Company Number: None

PATIENT
  Age: 67 Year
  Sex: Female
  Weight: 52.1637 kg

DRUGS (2)
  1. HYDROXYZINE HCL [Suspect]
     Indication: HERPES ZOSTER
     Dosage: 25 MG. SUPPOSE TO BE 3 TIMES A DAY ORAL TABLET
     Route: 048
     Dates: start: 20120112
  2. HYDROXYZINE HCL [Suspect]
     Indication: PRURITUS
     Dosage: 25 MG. SUPPOSE TO BE 3 TIMES A DAY ORAL TABLET
     Route: 048
     Dates: start: 20120112

REACTIONS (2)
  - PRURITUS [None]
  - CONDITION AGGRAVATED [None]
